FAERS Safety Report 17086818 (Version 1)
Quarter: 2019Q4

REPORT INFORMATION
  Report Type: Report from Study
  Country: CN (occurrence: CN)
  Receive Date: 20191128
  Receipt Date: 20191128
  Transmission Date: 20200122
  Serious: Yes (Hospitalization)
  Sender: FDA-Public Use
  Company Number: CN-ROCHE-2456101

PATIENT
  Age: 58 Year
  Sex: Male
  Weight: 76 kg

DRUGS (19)
  1. BLINDED BEVACIZUMAB [Suspect]
     Active Substance: BEVACIZUMAB
     Indication: COLORECTAL CANCER METASTATIC
     Route: 065
     Dates: start: 20180730, end: 20180730
  2. CAPECITABINE. [Suspect]
     Active Substance: CAPECITABINE
     Indication: COLORECTAL CANCER METASTATIC
     Route: 048
     Dates: start: 20180821, end: 20180904
  3. BLINDED BEVACIZUMAB [Suspect]
     Active Substance: BEVACIZUMAB
     Route: 065
     Dates: start: 20180821, end: 20180821
  4. BLINDED BEVACIZUMAB [Suspect]
     Active Substance: BEVACIZUMAB
     Route: 065
     Dates: start: 20180919, end: 20180919
  5. OXALIPLATIN. [Suspect]
     Active Substance: OXALIPLATIN
     Route: 041
     Dates: start: 20180919, end: 20180919
  6. MORPHINE HYDROCHLORIDE TRIHYDRATE [Concomitant]
     Active Substance: MORPHINE HYDROCHLORIDE
     Route: 065
     Dates: start: 20180726
  7. OXALIPLATIN. [Suspect]
     Active Substance: OXALIPLATIN
     Route: 041
     Dates: start: 20180821, end: 20180821
  8. OXALIPLATIN. [Suspect]
     Active Substance: OXALIPLATIN
     Route: 041
     Dates: start: 20181010, end: 20181010
  9. OXALIPLATIN. [Suspect]
     Active Substance: OXALIPLATIN
     Route: 041
     Dates: start: 20181030, end: 20181030
  10. CAPECITABINE. [Suspect]
     Active Substance: CAPECITABINE
     Route: 048
     Dates: start: 20180919, end: 20181003
  11. BLINDED BEVACIZUMAB [Suspect]
     Active Substance: BEVACIZUMAB
     Route: 065
     Dates: start: 20181010, end: 20181010
  12. BLINDED BEVACIZUMAB [Suspect]
     Active Substance: BEVACIZUMAB
     Route: 065
     Dates: start: 20181120, end: 20181120
  13. OXALIPLATIN. [Suspect]
     Active Substance: OXALIPLATIN
     Indication: COLORECTAL CANCER METASTATIC
     Route: 041
     Dates: start: 20180730, end: 20180730
  14. OXALIPLATIN. [Suspect]
     Active Substance: OXALIPLATIN
     Route: 041
     Dates: start: 20181120, end: 20181120
  15. CAPECITABINE. [Suspect]
     Active Substance: CAPECITABINE
     Route: 048
     Dates: start: 20181010, end: 20181024
  16. OXYCONTIN [Concomitant]
     Active Substance: OXYCODONE HYDROCHLORIDE
     Route: 065
     Dates: start: 20180726
  17. BLINDED BEVACIZUMAB [Suspect]
     Active Substance: BEVACIZUMAB
     Route: 065
     Dates: start: 20181030, end: 20181030
  18. CAPECITABINE. [Suspect]
     Active Substance: CAPECITABINE
     Route: 048
     Dates: start: 20181030, end: 20181113
  19. CAPECITABINE. [Suspect]
     Active Substance: CAPECITABINE
     Route: 048
     Dates: start: 20181120, end: 20181203

REACTIONS (1)
  - Renal impairment [Unknown]

NARRATIVE: CASE EVENT DATE: 20181209
